FAERS Safety Report 14784472 (Version 1)
Quarter: 2018Q2

REPORT INFORMATION
  Report Type: Spontaneous
  Country: US (occurrence: US)
  Receive Date: 20180420
  Receipt Date: 20180420
  Transmission Date: 20180711
  Serious: Yes (Hospitalization, Other)
  Sender: FDA-Public Use
  Company Number: US-PROCTER+GAMBLE-GS18045680

PATIENT
  Age: 18 Year
  Sex: Female

DRUGS (2)
  1. DIPHENHYDRAMINE HCL [Suspect]
     Active Substance: DIPHENHYDRAMINE HYDROCHLORIDE
  2. IBUPROFEN                          /00109205/ [Suspect]
     Active Substance: IBUPROFEN

REACTIONS (16)
  - Pulseless electrical activity [Recovered/Resolved]
  - Blood pressure decreased [Unknown]
  - Drug level above therapeutic [Unknown]
  - Acute kidney injury [Unknown]
  - Compartment syndrome [Unknown]
  - Heart rate increased [Unknown]
  - Cardiac arrest [Recovered/Resolved]
  - Cardiogenic shock [Recovered/Resolved]
  - Acute hepatic failure [Unknown]
  - Acute respiratory distress syndrome [Recovered/Resolved]
  - Overdose [Unknown]
  - Toxicity to various agents [Unknown]
  - Rhabdomyolysis [Unknown]
  - Tachycardia [Recovered/Resolved]
  - Seizure [Unknown]
  - Unresponsive to stimuli [Recovered/Resolved]
